FAERS Safety Report 16319885 (Version 1)
Quarter: 2019Q2

REPORT INFORMATION
  Report Type: Spontaneous
  Country: US (occurrence: US)
  Receive Date: 20190516
  Receipt Date: 20190516
  Transmission Date: 20190711
  Serious: Yes (Hospitalization, Other)
  Sender: FDA-Public Use
  Company Number: PHEH2019US020511

PATIENT
  Sex: Female

DRUGS (1)
  1. TASIGNA [Suspect]
     Active Substance: NILOTINIB
     Indication: CHRONIC MYELOID LEUKAEMIA
     Dosage: 2 MG, BID
     Route: 048
     Dates: start: 200807

REACTIONS (41)
  - Increased tendency to bruise [Unknown]
  - Phlebitis [Unknown]
  - Left atrial enlargement [Unknown]
  - Pain in extremity [Unknown]
  - Asthenia [Unknown]
  - Gastrooesophageal reflux disease [Unknown]
  - Type 2 diabetes mellitus [Unknown]
  - Pain [Unknown]
  - Contusion [Unknown]
  - Headache [Unknown]
  - Musculoskeletal chest pain [Unknown]
  - Hyperkalaemia [Unknown]
  - Sinus tachycardia [Unknown]
  - Herpes zoster [Unknown]
  - Cough [Unknown]
  - Depression [Unknown]
  - Migraine [Unknown]
  - Arteriosclerosis [Unknown]
  - Gout [Unknown]
  - Neck pain [Unknown]
  - Peripheral swelling [Unknown]
  - Cellulitis [Unknown]
  - Vitamin D deficiency [Unknown]
  - Dysstasia [Unknown]
  - Ligament sprain [Unknown]
  - Bronchitis [Unknown]
  - Obesity [Unknown]
  - Urinary tract infection [Unknown]
  - Cerebrovascular accident [Unknown]
  - Coronary artery disease [Unknown]
  - Insomnia [Unknown]
  - Nausea [Unknown]
  - Hemiplegia [Unknown]
  - Pericardial effusion [Unknown]
  - Dysarthria [Unknown]
  - Nephropathy [Unknown]
  - Osteoporosis [Unknown]
  - Chest pain [Unknown]
  - Dyspnoea [Unknown]
  - Stenosis [Unknown]
  - Dermatitis [Unknown]
